FAERS Safety Report 5844360-3 (Version None)
Quarter: 2008Q3

REPORT INFORMATION
  Report Type: 
  Country: None (occurrence: None)
  Receive Date: 20080808
  Receipt Date: 20080724
  Transmission Date: 20090109
  Serious: Yes (Hospitalization)
  Sender: FDA-Public Use
  Company Number: DSJ-2008-08621

PATIENT
  Age: 64 Year
  Sex: Female

DRUGS (1)
  1. OLMETEC [Suspect]
     Indication: HYPERTENSION
     Dosage: 20 MG (20 MG, 1 IN  1 D), PER ORAL
     Route: 048
     Dates: start: 20080630, end: 20080707

REACTIONS (2)
  - CHOLELITHIASIS [None]
  - HEPATITIS ACUTE [None]
